FAERS Safety Report 4423014-4 (Version None)
Quarter: 2004Q3

REPORT INFORMATION
  Report Type: 
  Country: None (occurrence: None)
  Receive Date: 20040805
  Receipt Date: 20040720
  Transmission Date: 20050211
  Serious: Yes (Hospitalization)
  Sender: FDA-Public Use
  Company Number: 201703

PATIENT
  Age: 50 Year
  Sex: Female
  Weight: 90.7194 kg

DRUGS (9)
  1. AVONEX [Suspect]
     Indication: MULTIPLE SCLEROSIS
     Dosage: 30 MG QW IM
     Dates: start: 20030701, end: 20030801
  2. AVONEX [Suspect]
     Indication: MULTIPLE SCLEROSIS
     Dosage: 30 MCG QW IM
     Dates: start: 20030801
  3. SYNTHROID [Concomitant]
  4. ACIPHEX [Concomitant]
  5. CELEXA [Concomitant]
  6. WELLBUTRIN [Concomitant]
  7. NEURONTIN [Concomitant]
  8. ULTRAM [Concomitant]
  9. PREDNISONE [Concomitant]

REACTIONS (7)
  - CONVULSION [None]
  - DIABETES MELLITUS [None]
  - FALL [None]
  - HEAD INJURY [None]
  - HYPERTENSION [None]
  - LOSS OF CONSCIOUSNESS [None]
  - PROCEDURAL COMPLICATION [None]
